FAERS Safety Report 8981126 (Version 1)
Quarter: 2012Q4

REPORT INFORMATION
  Report Type: 
  Country: US (occurrence: US)
  Receive Date: 20121221
  Receipt Date: 20121221
  Transmission Date: 20130627
  Serious: No
  Sender: FDA-Public Use
  Company Number: US-PFIZER INC-2012322584

PATIENT
  Sex: Male

DRUGS (1)
  1. EFFEXOR XR [Suspect]
     Dosage: UNK
     Dates: end: 20121216

REACTIONS (4)
  - Restlessness [Unknown]
  - Muscle spasms [Unknown]
  - Hyperhidrosis [Unknown]
  - Insomnia [Unknown]
